FAERS Safety Report 25596623 (Version 1)
Quarter: 2025Q3

REPORT INFORMATION
  Report Type: Report from Study
  Country: CA (occurrence: CA)
  Receive Date: 20250723
  Receipt Date: 20250723
  Transmission Date: 20251021
  Serious: Yes (Hospitalization)
  Sender: BAUSCH AND LOMB
  Company Number: CA-BAUSCH-BL-2025-006732

PATIENT
  Age: 75 Year
  Sex: Female

DRUGS (2)
  1. SILIQ [Suspect]
     Active Substance: BRODALUMAB
     Indication: Psoriasis
     Dosage: 210MG/1.5ML WEEKLY (WEEK 0-2)
     Route: 058
     Dates: start: 20241114, end: 20241126
  2. SILIQ [Suspect]
     Active Substance: BRODALUMAB
     Dosage: 210MG/1.5ML Q2 WEEKS
     Route: 058
     Dates: start: 20241210

REACTIONS (5)
  - Blood pressure abnormal [Recovered/Resolved]
  - Cardiac disorder [Recovered/Resolved]
  - Malaise [Recovered/Resolved]
  - Cellulitis [Unknown]
  - Intentional product use issue [Unknown]

NARRATIVE: CASE EVENT DATE: 20250101
